FAERS Safety Report 9223202 (Version 1)
Quarter: 2013Q2

REPORT INFORMATION
  Report Type: Spontaneous
  Country: US (occurrence: None)
  Receive Date: 20130409
  Receipt Date: 20130409
  Transmission Date: 20140414
  Serious: Yes (Death)
  Sender: FDA-Public Use
  Company Number: None

PATIENT
  Age: 70 Year
  Sex: Male
  Weight: 93 kg

DRUGS (2)
  1. ERTAPENEM [Suspect]
     Indication: SEPSIS
     Dosage: 1G  Q24H  IV DRIP
     Route: 041
     Dates: start: 20130408, end: 20130408
  2. ERTAPENEM [Suspect]
     Indication: LIVER ABSCESS
     Dosage: 1G  Q24H  IV DRIP
     Route: 041
     Dates: start: 20130408, end: 20130408

REACTIONS (3)
  - Convulsion [None]
  - Cardio-respiratory arrest [None]
  - Bradycardia [None]
